FAERS Safety Report 23794287 (Version 1)
Quarter: 2024Q2

REPORT INFORMATION
  Report Type: Spontaneous
  Country: GB (occurrence: GB)
  Receive Date: 20240429
  Receipt Date: 20240429
  Transmission Date: 20240715
  Serious: Yes (Other)
  Sender: FDA-Public Use
  Company Number: GB-MHRA-MED-202401261206079190-YJCFP

PATIENT
  Age: 21 Year
  Sex: Female

DRUGS (2)
  1. ISOTRETINOIN [Suspect]
     Active Substance: ISOTRETINOIN
     Indication: Adverse drug reaction
     Dosage: 20MG; ;
     Route: 065
     Dates: start: 20231102, end: 20231114
  2. PANTOPRAZOLE SODIUM [Concomitant]
     Active Substance: PANTOPRAZOLE SODIUM
     Indication: Adverse drug reaction
     Dosage: UNK
     Route: 065
     Dates: start: 20210420

REACTIONS (6)
  - Headache [Recovered/Resolved]
  - Influenza like illness [Recovered/Resolved]
  - Body temperature [Recovered/Resolved]
  - Abdominal pain upper [Recovered/Resolved]
  - Rash [Recovered/Resolved]
  - Localised oedema [Recovered/Resolved]

NARRATIVE: CASE EVENT DATE: 20231106
